FAERS Safety Report 25387717 (Version 2)
Quarter: 2025Q2

REPORT INFORMATION
  Report Type: Report from Study
  Country: EG (occurrence: EG)
  Receive Date: 20250603
  Receipt Date: 20250629
  Transmission Date: 20250716
  Serious: Yes (Hospitalization, Other)
  Sender: ABBVIE
  Company Number: EG-ABBVIE-6304104

PATIENT
  Age: 30 Year
  Sex: Female

DRUGS (7)
  1. RINVOQ [Suspect]
     Active Substance: UPADACITINIB
     Indication: Crohn^s disease
     Dosage: 3 TABLET
     Route: 048
     Dates: start: 202501, end: 202502
  2. RINVOQ [Suspect]
     Active Substance: UPADACITINIB
     Indication: Crohn^s disease
     Dosage: 3 TABLET
     Route: 048
     Dates: start: 20241128, end: 20241205
  3. RINVOQ [Suspect]
     Active Substance: UPADACITINIB
     Indication: Crohn^s disease
     Dosage: 3 TABLET
     Route: 048
     Dates: start: 20241220
  4. BISOPROLOL FUMARATE [Concomitant]
     Active Substance: BISOPROLOL FUMARATE
     Indication: Hypertension
     Route: 065
  5. IMURAN [Concomitant]
     Active Substance: AZATHIOPRINE
     Indication: Product used for unknown indication
  6. REMICADE [Concomitant]
     Active Substance: INFLIXIMAB
     Indication: Product used for unknown indication
  7. STELARA [Concomitant]
     Active Substance: USTEKINUMAB
     Indication: Product used for unknown indication

REACTIONS (25)
  - Emergency care [Unknown]
  - Muscle spasms [Recovering/Resolving]
  - Pyrexia [Recovered/Resolved]
  - Muscle spasms [Unknown]
  - Eye irritation [Recovering/Resolving]
  - Paraesthesia [Recovering/Resolving]
  - Back pain [Unknown]
  - Eye pain [Recovering/Resolving]
  - Facial asymmetry [Recovering/Resolving]
  - Bone pain [Not Recovered/Not Resolved]
  - Infection [Not Recovered/Not Resolved]
  - Nasopharyngitis [Recovered/Resolved]
  - Dystonia [Not Recovered/Not Resolved]
  - Nasopharyngitis [Recovered/Resolved]
  - Arthralgia [Not Recovered/Not Resolved]
  - Muscle rigidity [Unknown]
  - Pharmacophobia [Unknown]
  - Central nervous system vasculitis [Unknown]
  - Burning sensation [Unknown]
  - Hypoaesthesia [Unknown]
  - Movement disorder [Unknown]
  - Intervertebral disc protrusion [Unknown]
  - Autoimmune thyroiditis [Not Recovered/Not Resolved]
  - Fatigue [Unknown]
  - Oropharyngeal pain [Recovered/Resolved]

NARRATIVE: CASE EVENT DATE: 20240101
